FAERS Safety Report 11701653 (Version 2)
Quarter: 2015Q4

REPORT INFORMATION
  Report Type: Spontaneous
  Country: JP (occurrence: JP)
  Receive Date: 20151105
  Receipt Date: 20151129
  Transmission Date: 20160304
  Serious: Yes (Hospitalization)
  Sender: FDA-Public Use
  Company Number: PHJP2015JP017683

PATIENT
  Sex: Male

DRUGS (2)
  1. EXELON PATCH [Suspect]
     Active Substance: RIVASTIGMINE
     Dosage: 1.9 MG, QD (PATCH 2.5, RIVASTIGMINE BASE 4.5 MG)
     Route: 062
     Dates: start: 201311
  2. EXELON PATCH [Suspect]
     Active Substance: RIVASTIGMINE
     Indication: DEMENTIA ALZHEIMER^S TYPE
     Dosage: 4.6 MG, QD (PATCH 5, RIVASTIGMINE BASE 9 MG)
     Route: 062
     Dates: start: 201310, end: 201311

REACTIONS (3)
  - Spinal compression fracture [Recovering/Resolving]
  - Restlessness [Recovered/Resolved]
  - Fall [Recovering/Resolving]

NARRATIVE: CASE EVENT DATE: 201311
